FAERS Safety Report 16114765 (Version 2)
Quarter: 2019Q2

REPORT INFORMATION
  Report Type: Report from Study
  Country: FR (occurrence: FR)
  Receive Date: 20190325
  Receipt Date: 20190508
  Transmission Date: 20190711
  Serious: Yes (Other)
  Sender: FDA-Public Use
  Company Number: FR-JNJFOC-20190323397

PATIENT
  Age: 79 Year
  Sex: Female
  Weight: 79 kg

DRUGS (4)
  1. STELARA [Suspect]
     Active Substance: USTEKINUMAB
     Indication: PSORIASIS
     Dosage: APROXIMATELY TOTAL NUMBER OF INJECTIONS RECEIVED BY THE PATIENT ARE 9
     Route: 058
     Dates: start: 20161212
  2. NEUROTOP [Concomitant]
     Active Substance: CARBAMAZEPINE
     Route: 065
     Dates: start: 20171218
  3. FLECAINE [Concomitant]
     Active Substance: FLECAINIDE
     Route: 065
  4. PLAVIX [Concomitant]
     Active Substance: CLOPIDOGREL BISULFATE
     Route: 065

REACTIONS (3)
  - Wrong dose [Unknown]
  - Escherichia urinary tract infection [Recovered/Resolved]
  - Off label use [Unknown]

NARRATIVE: CASE EVENT DATE: 201712
